FAERS Safety Report 17223688 (Version 1)
Quarter: 2020Q1

REPORT INFORMATION
  Report Type: Other
  Country: GB (occurrence: GB)
  Receive Date: 20200102
  Receipt Date: 20200102
  Transmission Date: 20200409
  Serious: Yes (Hospitalization, Other)
  Sender: FDA-Public Use
  Company Number: GB-ASTELLAS-2019US052030

PATIENT
  Age: 10 Year
  Sex: Male
  Weight: 51 kg

DRUGS (6)
  1. TACROLIMUS. [Suspect]
     Active Substance: TACROLIMUS
     Indication: PROPHYLAXIS AGAINST TRANSPLANT REJECTION
     Route: 048
     Dates: start: 20140304
  2. MYCOPHENOLATE MOFETIL. [Concomitant]
     Active Substance: MYCOPHENOLATE MOFETIL
     Indication: PRODUCT USED FOR UNKNOWN INDICATION
     Route: 065
  3. TACROLIMUS. [Interacting]
     Active Substance: TACROLIMUS
     Dosage: UNK UNK, UNKNOWN FREQ.
     Route: 065
  4. PREDNISOLONE. [Concomitant]
     Active Substance: PREDNISOLONE
     Indication: PRODUCT USED FOR UNKNOWN INDICATION
     Dosage: 10 MG, ON ALTERNATE DAYS
     Route: 048
  5. CLARITHROMYCIN. [Interacting]
     Active Substance: CLARITHROMYCIN
     Indication: SCARLET FEVER
     Route: 048
     Dates: start: 20191209, end: 20191212
  6. PHENOXYMETHYLPENICILLIN [Concomitant]
     Active Substance: PENICILLIN V
     Indication: SCARLET FEVER
     Route: 065

REACTIONS (8)
  - Toxicity to various agents [Recovered/Resolved]
  - Urine output decreased [Unknown]
  - Vomiting [Unknown]
  - Diarrhoea [Unknown]
  - Cough [Unknown]
  - Product use issue [Unknown]
  - Drug interaction [Unknown]
  - Dehydration [Unknown]

NARRATIVE: CASE EVENT DATE: 20140304
